FAERS Safety Report 9393829 (Version 4)
Quarter: 2013Q3

REPORT INFORMATION
  Report Type: Spontaneous
  Country: GB (occurrence: None)
  Receive Date: 20130705
  Receipt Date: 20130903
  Transmission Date: 20140515
  Serious: Yes (Hospitalization)
  Sender: FDA-Public Use
  Company Number: SYM-2013-05314

PATIENT
  Age: 67 Year
  Sex: Male

DRUGS (12)
  1. 5 FU [Suspect]
     Indication: COLORECTAL CANCER METASTATIC
     Route: 040
     Dates: start: 20130416, end: 20130416
  2. IRINOTECAN (IRINOTECAN) (SOLUTION FOR INFUSION) (IRINOTECAN) [Suspect]
     Indication: COLORECTAL CANCER METASTATIC
     Dosage: 360 MG, EVERY OTHER WEEK, INTRAVENOUS (NOT OTHERWISE SPECIFIED)
     Route: 042
     Dates: start: 20130416, end: 20130416
  3. LEUCOVORIN [Suspect]
     Indication: COLORECTAL CANCER METASTATIC
     Dosage: 800 MG, EVERY OTHER WEEK, INTRAVENOUS (NOT OTHERWISE SPECIFIED)
     Route: 042
     Dates: start: 20130416, end: 20130416
  4. AFLIBERCEPT [Suspect]
     Indication: COLORECTAL CANCER METASTATIC
     Dosage: 435 MG, EVERY OTHER WEEK, INTRAVENOUS (NOT OTHERWISE SPECIFIED)
     Route: 042
     Dates: start: 20130416, end: 20130416
  5. ANTIPROPULSIVES (ANTIPROPULSIVES) [Concomitant]
  6. G-GSF (GRANULOCYTE COLONY STIUMULATING FACTOR) (GRANULOCYTE COLONY STIMULATING FACTOR) [Concomitant]
  7. ANALGESICS (ANALGESICS) [Concomitant]
  8. ANGIOTENSIN II ANTAGONISTS (ANGIOTENSIN II ANTAGONISTS, PLAIN [Concomitant]
  9. G-CSF (GRANULOCYTE COLONY STIMULATING FACTOR) [Concomitant]
  10. OMEPRAZOLE (OMEPRAZOLE) (OMEPRAZOLE) [Concomitant]
  11. METOCLOPRAMIDE (METOCLOPRAMIDE) (METOCLOPRAMIDE) [Concomitant]
  12. ANTITHROMBOTIC AGENTS (ANTITHROMBOTIC AGENTS) [Concomitant]

REACTIONS (2)
  - Orthostatic hypotension [None]
  - Dizziness [None]
